FAERS Safety Report 9979198 (Version 1)
Quarter: 2014Q1

REPORT INFORMATION
  Report Type: Report from Study
  Country: US (occurrence: US)
  Receive Date: 20140306
  Receipt Date: 20140306
  Transmission Date: 20141002
  Serious: No
  Sender: FDA-Public Use
  Company Number: US-ABBVIE-13P-163-1169569-00

PATIENT
  Sex: Female

DRUGS (11)
  1. HUMIRA [Suspect]
     Indication: RHEUMATOID ARTHRITIS
     Route: 058
     Dates: start: 20130905
  2. METHOTREXATE [Concomitant]
     Indication: PRODUCT USED FOR UNKNOWN INDICATION
  3. METFORMIN [Concomitant]
     Indication: DIABETES MELLITUS
  4. METFORMIN [Concomitant]
  5. METFORMIN [Concomitant]
  6. METFORMIN [Concomitant]
  7. METFORMIN [Concomitant]
  8. METFORMIN [Concomitant]
  9. METFORMIN [Concomitant]
  10. HCTZ [Concomitant]
     Indication: HYPERTENSION
  11. AMLODIPINE [Concomitant]
     Indication: HYPERTENSION

REACTIONS (1)
  - Depression [Not Recovered/Not Resolved]
